FAERS Safety Report 10173036 (Version 1)
Quarter: 2014Q2

REPORT INFORMATION
  Report Type: Report from Study
  Country: AR (occurrence: AR)
  Receive Date: 20140515
  Receipt Date: 20140515
  Transmission Date: 20141212
  Serious: Yes (Other)
  Sender: FDA-Public Use
  Company Number: PHHY2014AR057854

PATIENT
  Sex: Male

DRUGS (2)
  1. EXFORGE [Suspect]
     Indication: HYPERTENSION
     Dosage: 1 DF, DAILY
     Route: 048
  2. INFLUENZA VIRUS VACC SEASONAL INN [Suspect]
     Indication: IMMUNISATION

REACTIONS (4)
  - Deafness [Recovering/Resolving]
  - Nasopharyngitis [Recovering/Resolving]
  - Palpitations [Not Recovered/Not Resolved]
  - Blood pressure increased [Unknown]
